FAERS Safety Report 12773747 (Version 1)
Quarter: 2016Q3

REPORT INFORMATION
  Report Type: Spontaneous
  Country: US (occurrence: US)
  Receive Date: 20160923
  Receipt Date: 20160923
  Transmission Date: 20161109
  Serious: No
  Sender: FDA-Public Use
  Company Number: US-ASTRAZENECA-2016SE97971

PATIENT
  Sex: Male
  Weight: 80.7 kg

DRUGS (4)
  1. HYDROCHLORTHIAZIDED [Concomitant]
  2. BRILINTA [Suspect]
     Active Substance: TICAGRELOR
     Indication: ACUTE CORONARY SYNDROME
     Route: 048
     Dates: start: 20160528
  3. ATENOLOL. [Suspect]
     Active Substance: ATENOLOL
     Indication: HYPERTENSION
     Route: 065
  4. BRILINTA [Suspect]
     Active Substance: TICAGRELOR
     Indication: STENT PLACEMENT
     Route: 048
     Dates: start: 20160528

REACTIONS (5)
  - Weight decreased [Unknown]
  - Drug dose omission [Unknown]
  - Tongue discolouration [Unknown]
  - Paraesthesia oral [Unknown]
  - Angina pectoris [Unknown]
